APPROVED DRUG PRODUCT: FIBRICOR
Active Ingredient: FENOFIBRIC ACID
Strength: 105MG
Dosage Form/Route: TABLET;ORAL
Application: N022418 | Product #002
Applicant: ATHENA BIOSCIENCE LLC
Approved: Aug 14, 2009 | RLD: Yes | RS: No | Type: DISCN

PATENTS:
Patent 7569612 | Expires: Aug 20, 2027
Patent 7741374 | Expires: Aug 20, 2027
Patent 7915247 | Expires: Aug 20, 2027
Patent 7915247 | Expires: Aug 20, 2027
Patent 7741373 | Expires: Aug 20, 2027
Patent 7741374 | Expires: Aug 20, 2027
Patent 7915247 | Expires: Aug 20, 2027